FAERS Safety Report 8020946-5 (Version None)
Quarter: 2011Q4

REPORT INFORMATION
  Report Type: 
  Country: None (occurrence: None)
  Receive Date: 20111228
  Receipt Date: 20111219
  Transmission Date: 20120403
  Serious: Yes (Other)
  Sender: FDA-Public Use
  Company Number: 1000025131

PATIENT
  Age: 25 Year
  Sex: Male
  Weight: 91.6 kg

DRUGS (9)
  1. VIIBRYD [Suspect]
     Indication: POST-TRAUMATIC STRESS DISORDER
     Dosage: 10 MG (10 MG, 1 IN 1 D), ORAL, 20 MG (20 MG, 1 IN 1 D), ORAL, 40 MG (40 MG, 1 IN 1 D), ORAL
     Route: 048
     Dates: start: 20110922, end: 20110928
  2. VIIBRYD [Suspect]
     Indication: MAJOR DEPRESSION
     Dosage: 10 MG (10 MG, 1 IN 1 D), ORAL, 20 MG (20 MG, 1 IN 1 D), ORAL, 40 MG (40 MG, 1 IN 1 D), ORAL
     Route: 048
     Dates: start: 20110922, end: 20110928
  3. VIIBRYD [Suspect]
     Indication: POST-TRAUMATIC STRESS DISORDER
     Dosage: 10 MG (10 MG, 1 IN 1 D), ORAL, 20 MG (20 MG, 1 IN 1 D), ORAL, 40 MG (40 MG, 1 IN 1 D), ORAL
     Route: 048
     Dates: start: 20110929, end: 20111005
  4. VIIBRYD [Suspect]
     Indication: MAJOR DEPRESSION
     Dosage: 10 MG (10 MG, 1 IN 1 D), ORAL, 20 MG (20 MG, 1 IN 1 D), ORAL, 40 MG (40 MG, 1 IN 1 D), ORAL
     Route: 048
     Dates: start: 20110929, end: 20111005
  5. VIIBRYD [Suspect]
     Indication: POST-TRAUMATIC STRESS DISORDER
     Dosage: 10 MG (10 MG, 1 IN 1 D), ORAL, 20 MG (20 MG, 1 IN 1 D), ORAL, 40 MG (40 MG, 1 IN 1 D), ORAL
     Route: 048
     Dates: start: 20111006
  6. VIIBRYD [Suspect]
     Indication: MAJOR DEPRESSION
     Dosage: 10 MG (10 MG, 1 IN 1 D), ORAL, 20 MG (20 MG, 1 IN 1 D), ORAL, 40 MG (40 MG, 1 IN 1 D), ORAL
     Route: 048
     Dates: start: 20111006
  7. SEROQUEL [Suspect]
     Indication: INSOMNIA
     Dosage: 1/2 TAB TO 1 TAB AT BEDTIME (AS NEEDED), ORAL
     Route: 048
     Dates: start: 20111001, end: 20111021
  8. LORAZEPAM (LORAZEPAM (1 MILLIGRAM) (LORAZEPAM) [Concomitant]
  9. PRAZOSIN (PRAZOSIN) (PRAZOSIN) [Concomitant]

REACTIONS (4)
  - NUCHAL RIGIDITY [None]
  - MASKED FACIES [None]
  - MUSCLE RIGIDITY [None]
  - GAIT DISTURBANCE [None]
